FAERS Safety Report 24539760 (Version 1)
Quarter: 2024Q4

REPORT INFORMATION
  Report Type: Spontaneous
  Country: CN (occurrence: CN)
  Receive Date: 20241023
  Receipt Date: 20241023
  Transmission Date: 20250115
  Serious: Yes (Hospitalization)
  Sender: PFIZER
  Company Number: CN-PFIZER INC-PV202400135226

PATIENT
  Age: 68 Year
  Sex: Female
  Weight: 60 kg

DRUGS (8)
  1. CYTARABINE [Suspect]
     Active Substance: CYTARABINE
     Indication: Leukaemia
     Dosage: 25 MG, 2X/DAY
     Route: 058
     Dates: start: 20240916, end: 20240922
  2. AZACITIDINE [Suspect]
     Active Substance: AZACITIDINE
     Indication: Leukaemia
     Dosage: 100 MG, 1X/DAY
     Route: 058
     Dates: start: 20240916, end: 20240922
  3. WATER [Suspect]
     Active Substance: WATER
     Indication: Leukaemia
     Dosage: 4 ML, 1X/DAY
     Route: 058
     Dates: start: 20240916, end: 20240922
  4. VENETOCLAX [Suspect]
     Active Substance: VENETOCLAX
     Indication: Leukaemia
     Dosage: 100 MG (D1)
     Route: 048
  5. VENETOCLAX [Suspect]
     Active Substance: VENETOCLAX
     Dosage: 200 MG (D2)
     Route: 048
  6. VENETOCLAX [Suspect]
     Active Substance: VENETOCLAX
     Dosage: 0.400 G, 1X/DAY (D3-21)
     Route: 048
     Dates: start: 20240916, end: 20240923
  7. SORAFENIB [Suspect]
     Active Substance: SORAFENIB
     Indication: Leukaemia
     Dosage: 200 MG, 2X/DAY (D1-14)
     Route: 048
     Dates: start: 20240916, end: 20240923
  8. ONDANSETRON [Concomitant]
     Active Substance: ONDANSETRON
     Indication: Prophylaxis of nausea and vomiting
     Dosage: UNK

REACTIONS (9)
  - Nausea [Recovering/Resolving]
  - Vomiting [Recovering/Resolving]
  - Dysphagia [Unknown]
  - Decreased appetite [Not Recovered/Not Resolved]
  - Gastrooesophageal reflux disease [Unknown]
  - Dyspepsia [Unknown]
  - Abdominal distension [Unknown]
  - Abdominal discomfort [Recovering/Resolving]
  - Diarrhoea [Recovering/Resolving]

NARRATIVE: CASE EVENT DATE: 20240916
